FAERS Safety Report 20691514 (Version 1)
Quarter: 2022Q2

REPORT INFORMATION
  Report Type: Spontaneous
  Country: US (occurrence: US)
  Receive Date: 20220408
  Receipt Date: 20220408
  Transmission Date: 20220721
  Serious: No
  Sender: FDA-Public Use
  Company Number: US-PFIZER INC-202200512064

PATIENT
  Age: 19 Year
  Sex: Male
  Weight: 77.098 kg

DRUGS (1)
  1. PAXLOVID [Suspect]
     Active Substance: NIRMATRELVIR\RITONAVIR
     Indication: COVID-19
     Dosage: UNK
     Dates: start: 20220401

REACTIONS (6)
  - Ageusia [Unknown]
  - Pyrexia [Unknown]
  - Taste disorder [Unknown]
  - Myalgia [Unknown]
  - Oropharyngeal pain [Unknown]
  - Productive cough [Unknown]

NARRATIVE: CASE EVENT DATE: 20220401
